FAERS Safety Report 24614704 (Version 1)
Quarter: 2024Q4

REPORT INFORMATION
  Report Type: Spontaneous
  Country: MX (occurrence: MX)
  Receive Date: 20241113
  Receipt Date: 20241113
  Transmission Date: 20250115
  Serious: Yes (Other)
  Sender: LOREAL
  Company Number: MX-L?OREAL USA S/D, INC.-2024LOR00045

PATIENT
  Age: 25 Year
  Sex: Female

DRUGS (1)
  1. OCTOCRYLENE [Suspect]
     Active Substance: OCTOCRYLENE
     Indication: Prophylaxis against solar radiation
     Dosage: UNK
     Route: 061

REACTIONS (1)
  - Anaphylactic reaction [Unknown]
